FAERS Safety Report 5884255-2 (Version None)
Quarter: 2008Q3

REPORT INFORMATION
  Report Type: 
  Country: None (occurrence: None)
  Receive Date: 20080915
  Receipt Date: 20080905
  Transmission Date: 20090109
  Serious: Yes (Hospitalization)
  Sender: FDA-Public Use
  Company Number: US-AMGEN-QUU305998

PATIENT
  Sex: Female

DRUGS (1)
  1. ENBREL [Suspect]
     Indication: RHEUMATOID ARTHRITIS
     Route: 058
     Dates: start: 20040101, end: 20080606

REACTIONS (6)
  - COUGH [None]
  - DYSPNOEA [None]
  - FUNGAL INFECTION [None]
  - HEART RATE IRREGULAR [None]
  - HYPERHIDROSIS [None]
  - RENAL FAILURE [None]
